FAERS Safety Report 15705976 (Version 2)
Quarter: 2018Q4

REPORT INFORMATION
  Report Type: Report from Study
  Country: TW (occurrence: TW)
  Receive Date: 20181210
  Receipt Date: 20181220
  Transmission Date: 20190205
  Serious: Yes (Hospitalization)
  Sender: FDA-Public Use
  Company Number: TW-AMGEN-TWNCT2018163272

PATIENT
  Age: 74 Year
  Sex: Female
  Weight: 60.9 kg

DRUGS (29)
  1. DEXAMETHASONE. [Concomitant]
     Active Substance: DEXAMETHASONE
     Indication: PLASMA CELL MYELOMA
     Dosage: ADVERSE EVENT
     Dates: start: 20171206
  2. DIOSMECTITE [Concomitant]
     Active Substance: MONTMORILLONITE
     Dosage: 1 UNK, UNK
     Dates: start: 20180723
  3. ACETAMINOPHEN. [Concomitant]
     Active Substance: ACETAMINOPHEN
     Dosage: 500 MG, UNK
     Dates: start: 20180816, end: 20181016
  4. INDAPAMIDE. [Concomitant]
     Active Substance: INDAPAMIDE
     Dosage: 1.5 MG, UNK
     Dates: start: 20180919
  5. CARFILZOMIB [Suspect]
     Active Substance: CARFILZOMIB
     Indication: PLASMA CELL MYELOMA
     Dosage: 72 MG, PER CHEMO REGIM
     Route: 042
     Dates: start: 20171206
  6. ACYCLOVIR. [Concomitant]
     Active Substance: ACYCLOVIR
     Dosage: 200 MG, UNK
     Route: 048
     Dates: start: 20171206
  7. LAMIVUDINE. [Concomitant]
     Active Substance: LAMIVUDINE
     Dosage: 100 MG, UNK
     Dates: start: 20140715
  8. OTILONIUM [Concomitant]
     Dosage: 40 MG, UNK
     Dates: start: 20180801
  9. COLIN [Concomitant]
     Dosage: 5 ML, UNK
     Dates: start: 20180816, end: 20180829
  10. LEVOCETIRIZINE [Concomitant]
     Active Substance: LEVOCETIRIZINE
     Dosage: 5 MG, UNK
     Dates: start: 20181015, end: 20181023
  11. ACETYLCYSTEINE. [Concomitant]
     Active Substance: ACETYLCYSTEINE
     Dosage: 600 MG, UNK
     Dates: start: 20171212
  12. TIMOLOL. [Concomitant]
     Active Substance: TIMOLOL
     Dosage: 1 GTT, UNK
     Dates: start: 20180301
  13. ACTEIN [Concomitant]
     Dosage: 1 UNK, UNK
     Dates: start: 20181023, end: 20181029
  14. ESOMEPRAZOLE. [Concomitant]
     Active Substance: ESOMEPRAZOLE MAGNESIUM
     Dosage: 40 MG, UNK
     Route: 048
     Dates: start: 20171206
  15. NORMAL SALINE [Concomitant]
     Active Substance: SODIUM CHLORIDE
     Dosage: 250 ML, UNK
     Route: 042
     Dates: start: 20171206
  16. CODEINE [Concomitant]
     Active Substance: CODEINE
     Dosage: 30 MG, UNK
     Dates: start: 20181023, end: 20181029
  17. BETAHISTINE MESILATE [Concomitant]
     Active Substance: BETAHISTINE MESILATE
     Dosage: 12 MG, UNK
     Dates: start: 20160502
  18. HYDROXYZINE [Concomitant]
     Active Substance: HYDROXYZINE HYDROCHLORIDE
     Dosage: 25 MG, UNK
     Dates: start: 20180704
  19. OLMESARTAN MEDOXOMIL. [Concomitant]
     Active Substance: OLMESARTAN MEDOXOMIL
     Dosage: 10 MG, UNK
     Dates: start: 20180705
  20. POTASSIUM GLUCONATE [Concomitant]
     Active Substance: POTASSIUM GLUCONATE
     Dosage: 2 UNK, UNK
     Dates: start: 20180801
  21. BROMELAINS W/CYSTEINE [Concomitant]
     Dosage: 1 UNK, UNK
     Dates: start: 20180816, end: 20180821
  22. FUROSEMIDE. [Concomitant]
     Active Substance: FUROSEMIDE
     Dosage: 40 MG, UNK
     Dates: start: 20181026, end: 20181120
  23. NICAMETATE CITRATE [Concomitant]
     Dosage: 50 MG, UNK
     Dates: start: 20150306
  24. NITROGLYCERIN. [Concomitant]
     Active Substance: NITROGLYCERIN
     Dosage: 0.6 MG, UNK
     Dates: start: 20181025
  25. DEXTROMETHORPHAN [Concomitant]
     Active Substance: DEXTROMETHORPHAN
     Dosage: 30 MG, UNK
     Dates: start: 20181015, end: 20181023
  26. ZOLPIDEM [Concomitant]
     Active Substance: ZOLPIDEM\ZOLPIDEM TARTRATE
     Dosage: 5 MG, UNK
     Dates: start: 20180124
  27. DICLOXACILLIN [Concomitant]
     Active Substance: DICLOXACILLIN
     Dosage: 250 MG, UNK
     Dates: start: 20180606
  28. BROMHEXINE [Concomitant]
     Active Substance: BROMHEXINE
     Dosage: 8 MG, UNK
     Dates: start: 20181015, end: 20181023
  29. THEOPHYLLINE [Concomitant]
     Active Substance: THEOPHYLLINE ANHYDROUS
     Dosage: 125 MG, UNK
     Dates: start: 20181023, end: 20181029

REACTIONS (2)
  - Pyrexia [Recovered/Resolved]
  - Myocardial infarction [Recovered/Resolved]

NARRATIVE: CASE EVENT DATE: 20181113
